FAERS Safety Report 12491759 (Version 1)
Quarter: 2016Q2

REPORT INFORMATION
  Report Type: Spontaneous
  Country: US (occurrence: None)
  Receive Date: 20160622
  Receipt Date: 20160622
  Transmission Date: 20160815
  Serious: No
  Sender: FDA-Public Use
  Company Number: None

PATIENT
  Age: 77 Year
  Sex: Female
  Weight: 68.49 kg

DRUGS (4)
  1. ACELOUTOLOL [Concomitant]
  2. POTASSIUM [Concomitant]
     Active Substance: POTASSIUM
  3. LOSARTAN 100MG [Suspect]
     Active Substance: LOSARTAN
     Indication: HYPERTENSION
     Route: 048
     Dates: start: 20160506, end: 20160606
  4. HCTZ [Concomitant]
     Active Substance: HYDROCHLOROTHIAZIDE

REACTIONS (3)
  - Blood pressure increased [None]
  - Product quality issue [None]
  - Drug ineffective [None]
